FAERS Safety Report 16317713 (Version 1)
Quarter: 2019Q2

REPORT INFORMATION
  Report Type: Spontaneous
  Country: US (occurrence: US)
  Receive Date: 20190516
  Receipt Date: 20190516
  Transmission Date: 20190711
  Serious: No
  Sender: FDA-Public Use
  Company Number: US-GLAXOSMITHKLINE-US2019085230

PATIENT
  Sex: Female

DRUGS (1)
  1. ARNUITY ELLIPTA [Suspect]
     Active Substance: FLUTICASONE FUROATE
     Indication: ASTHMA
     Dosage: 1 PUFF(S), QOD, 1 INHALATION ON MONDAY, WEDNESDAY, AND FRIDAY
     Route: 055

REACTIONS (3)
  - Wrong technique in device usage process [Unknown]
  - Expired product administered [Unknown]
  - Underdose [Unknown]
